FAERS Safety Report 5134815-1 (Version None)
Quarter: 2006Q4

REPORT INFORMATION
  Report Type: 
  Country: None (occurrence: None)
  Receive Date: 20061025
  Receipt Date: 20061018
  Transmission Date: 20070319
  Serious: Yes (Death, Other)
  Sender: FDA-Public Use
  Company Number: BE-PURDUE-GBR_2006_0002542

PATIENT
  Age: 51 Year
  Sex: Male
  Weight: 80 kg

DRUGS (7)
  1. TRANSTEC [Suspect]
     Indication: PAIN
     Dosage: 17.5 MCG, Q1H
     Route: 062
     Dates: start: 20060424, end: 20060427
  2. TRANSTEC [Suspect]
     Dosage: 52.5 MCG, Q1H
     Route: 062
     Dates: start: 20060509, end: 20060704
  3. TRANSTEC [Suspect]
     Dosage: 35 MCG, Q1H
     Route: 062
     Dates: start: 20060427, end: 20060509
  4. MORPHINE SULFATE [Suspect]
     Indication: DRUG USE FOR UNKNOWN INDICATION
     Dosage: 90 MG, DAILY
     Route: 065
     Dates: start: 20060311
  5. FENTANYL [Concomitant]
     Indication: DRUG USE FOR UNKNOWN INDICATION
     Dosage: 1800 MCG, DAILY
     Route: 062
     Dates: start: 20060311
  6. DICLOFENAC [Concomitant]
     Indication: DRUG USE FOR UNKNOWN INDICATION
     Dosage: 150 MG, DAILY
     Route: 065
     Dates: start: 20060311
  7. MACROGOL [Concomitant]
     Indication: LAXATIVE SUPPORTIVE CARE
     Dosage: 13 GRAM, DAILY
     Route: 065
     Dates: start: 20060424

REACTIONS (3)
  - BRONCHIAL CARCINOMA [None]
  - HALLUCINATION [None]
  - INADEQUATE ANALGESIA [None]
